FAERS Safety Report 7715706-6 (Version None)
Quarter: 2011Q3

REPORT INFORMATION
  Report Type: 
  Country: None (occurrence: None)
  Receive Date: 20110829
  Receipt Date: 20110825
  Transmission Date: 20111222
  Serious: Yes (Other)
  Sender: FDA-Public Use
  Company Number: JP-PFIZER INC-2011198002

PATIENT
  Sex: Female

DRUGS (2)
  1. LYRICA [Suspect]
     Indication: NERVE INJURY
     Dosage: 25 MG DAILY
  2. LYRICA [Suspect]
     Dosage: 50 MG DAILY

REACTIONS (3)
  - FALL [None]
  - FRACTURE [None]
  - DIZZINESS POSTURAL [None]
